FAERS Safety Report 18207317 (Version 2)
Quarter: 2021Q3

REPORT INFORMATION
  Report Type: Report from Study
  Country: US (occurrence: US)
  Receive Date: 20200828
  Receipt Date: 20210903
  Transmission Date: 20211014
  Serious: Yes (Hospitalization, Other)
  Sender: FDA-Public Use
  Company Number: US-ROCHE-2612775

PATIENT
  Age: 62 Year
  Sex: Female
  Weight: 106 kg

DRUGS (29)
  1. PRECEDEX [Concomitant]
     Active Substance: DEXMEDETOMIDINE HYDROCHLORIDE
     Dosage: 1000 MCG IN SODIUM CHLORIDE 0.9 % 250 ML INFUSION
     Route: 065
  2. LASIX [Concomitant]
     Active Substance: FUROSEMIDE
     Dates: start: 20200529
  3. ALTEPLASE. [Suspect]
     Active Substance: ALTEPLASE
     Indication: COVID-19
     Dosage: 2 INFUSIONS
     Route: 042
     Dates: start: 20200514, end: 20200516
  4. HUMULIN N [Concomitant]
     Active Substance: INSULIN HUMAN
     Dosage: 70/30 INJECTION 18 UNITS
     Route: 065
     Dates: start: 20200529
  5. HEPARIN [Concomitant]
     Active Substance: HEPARIN SODIUM
     Dosage: 50 UNITS/ML IN D5W
     Route: 065
  6. SEROQUEL [Concomitant]
     Active Substance: QUETIAPINE FUMARATE
     Dates: start: 20200529
  7. PERIDEX [Concomitant]
     Active Substance: CHLORHEXIDINE GLUCONATE
     Dosage: 0.12 % ORAL SOLUTION 15 ML
     Route: 048
  8. VANCOCIN [Concomitant]
     Active Substance: VANCOMYCIN HYDROCHLORIDE
     Dosage: VPB IN NORMAL SALINE 250 ML 1500 MG
     Route: 042
  9. TYLENOL [Concomitant]
     Active Substance: ACETAMINOPHEN
     Dosage: 325 MG/10.15 ML ORAL SOLUTION 975 MG
     Route: 065
  10. CALCIUM GLUCONATE;SODIUM CHLORIDE [Concomitant]
     Route: 042
     Dates: start: 20200529
  11. FLAGYL [Concomitant]
     Active Substance: METRONIDAZOLE\METRONIDAZOLE HYDROCHLORIDE
     Route: 065
  12. PRECEDEX [Concomitant]
     Active Substance: DEXMEDETOMIDINE HYDROCHLORIDE
     Dosage: 4 MCG/ML
     Dates: start: 20200529
  13. MIRALAX [Concomitant]
     Active Substance: POLYETHYLENE GLYCOL 3350
     Route: 065
  14. LEVOPHED [Concomitant]
     Active Substance: NOREPINEPHRINE BITARTRATE
     Dosage: 8 MG/250 ML INFUSION
     Route: 065
  15. POTASSIUM CHLORIDE. [Concomitant]
     Active Substance: POTASSIUM CHLORIDE
     Dates: start: 20200529
  16. PEPCID [Concomitant]
     Active Substance: FAMOTIDINE
     Route: 065
     Dates: start: 20200529
  17. METHADOSE [Concomitant]
     Active Substance: METHADONE HYDROCHLORIDE
     Dosage: 10 MG/ML ORAL SOLUTION
     Route: 048
     Dates: start: 20200529
  18. VERSED [Concomitant]
     Active Substance: MIDAZOLAM HYDROCHLORIDE
     Dosage: 1 MG/ML INJECTION 2?4 MG
     Route: 065
     Dates: start: 20200529
  19. BIO?K PLUS [Concomitant]
     Dosage: 50 BILLION SELL CAPSULE 2 CAPSULE
     Route: 048
     Dates: start: 20200529
  20. ADVIL [Concomitant]
     Active Substance: IBUPROFEN
     Route: 048
  21. HUMALOG [Concomitant]
     Active Substance: INSULIN LISPRO
     Dosage: 0?16 UNITS
     Route: 065
     Dates: start: 20200529
  22. OMNIPAQUE [Concomitant]
     Active Substance: IOHEXOL
  23. METHADOSE [Concomitant]
     Active Substance: METHADONE HYDROCHLORIDE
     Dates: start: 20200529
  24. FENTANYL. [Concomitant]
     Active Substance: FENTANYL
     Dosage: 2500 MCG IN SODIUM CHLORIDE 0.9% 100 ML INFUSION
     Route: 065
  25. LOVENOX [Concomitant]
     Active Substance: ENOXAPARIN SODIUM
     Dates: start: 20200529
  26. PROZAC [Concomitant]
     Active Substance: FLUOXETINE HYDROCHLORIDE
     Dosage: 20 MG/5 ML (4 MG/ML) ORAL SOLUTION 20 MG
     Route: 048
     Dates: start: 20200529
  27. PULMOZYME [Concomitant]
     Active Substance: DORNASE ALFA
     Dates: start: 20200529
  28. ROXICODONE [Concomitant]
     Active Substance: OXYCODONE HYDROCHLORIDE
     Dates: start: 20200529
  29. SENNA TABS [Concomitant]
     Active Substance: SENNOSIDES A AND B
     Dates: start: 20200529

REACTIONS (5)
  - Pulmonary embolism [Recovered/Resolved]
  - Bacterial sepsis [Recovered/Resolved]
  - Empyema [Unknown]
  - Pneumonia [Recovered/Resolved]
  - Bacterial test positive [Unknown]

NARRATIVE: CASE EVENT DATE: 20200523
